FAERS Safety Report 21845598 (Version 1)
Quarter: 2023Q1

REPORT INFORMATION
  Report Type: Other
  Country: US (occurrence: None)
  Receive Date: 20230111
  Receipt Date: 20230111
  Transmission Date: 20230417
  Serious: No
  Sender: FDA-Public Use
  Company Number: US-ROCHE-3259604

PATIENT
  Age: 41 Year
  Sex: Female

DRUGS (1)
  1. OCREVUS [Suspect]
     Active Substance: OCRELIZUMAB
     Indication: Multiple sclerosis
     Route: 065
     Dates: start: 20201130

REACTIONS (11)
  - Vomiting [Recovered/Resolved]
  - Therapeutic response shortened [Not Recovered/Not Resolved]
  - Fall [Recovered/Resolved]
  - Alopecia [Recovered/Resolved]
  - Hyperaesthesia [Unknown]
  - Rash [Unknown]
  - Oral herpes [Unknown]
  - Memory impairment [Unknown]
  - Disturbance in attention [Recovered/Resolved]
  - Skin disorder [Unknown]
  - Mobility decreased [Unknown]

NARRATIVE: CASE EVENT DATE: 20220901
